FAERS Safety Report 23258483 (Version 2)
Quarter: 2024Q2

REPORT INFORMATION
  Report Type: Spontaneous
  Country: US (occurrence: US)
  Receive Date: 20231204
  Receipt Date: 20240508
  Transmission Date: 20240715
  Serious: Yes (Death)
  Sender: FDA-Public Use
  Company Number: US-MYLANLABS-2023M1128089

PATIENT
  Age: 31 Year
  Sex: Female

DRUGS (10)
  1. XANAX [Suspect]
     Active Substance: ALPRAZOLAM
     Indication: Product used for unknown indication
     Dosage: 0.5 MILLIGRAM (AS NEEDED)
     Route: 065
     Dates: end: 2023
  2. LUMRYZ [Suspect]
     Active Substance: SODIUM OXYBATE
     Indication: Narcolepsy
     Dosage: 4.5 GRAM, QD (ONCE NIGHTLY)
     Route: 048
     Dates: start: 20230815, end: 202309
  3. LUMRYZ [Suspect]
     Active Substance: SODIUM OXYBATE
     Dosage: 7.5 GRAM, QD, (ONCE NIGHTLY)
     Route: 048
     Dates: start: 202309, end: 202310
  4. LUMRYZ [Suspect]
     Active Substance: SODIUM OXYBATE
     Dosage: 9 GRAM, QD (ONCE NIGHTLY)
     Route: 048
     Dates: start: 20231108, end: 20231108
  5. LUMRYZ [Concomitant]
     Active Substance: SODIUM OXYBATE
     Dosage: UNK
     Route: 065
  6. XYREM [Concomitant]
     Active Substance: SODIUM OXYBATE
     Dosage: UNK
     Route: 065
  7. XANAX [Concomitant]
     Active Substance: ALPRAZOLAM
     Dosage: 0.5 MILLIGRAM (AS NEEDED)
     Route: 065
  8. LEVOTHYROXINE [Concomitant]
     Active Substance: LEVOTHYROXINE\LEVOTHYROXINE SODIUM
     Dosage: 75 MILLIGRAM, QD, (DAILY)
     Route: 065
  9. ADDERALL [Concomitant]
     Active Substance: AMPHETAMINE ASPARTATE\AMPHETAMINE SULFATE\DEXTROAMPHETAMINE SACCHARATE\DEXTROAMPHETAMINE SULFATE
     Dosage: 20 MILLIGRAM, QID,  (FOUR TIMES A DAY)
     Route: 065
  10. SLYND [Concomitant]
     Active Substance: DROSPIRENONE
     Indication: Contraception
     Dosage: UNK
     Route: 065

REACTIONS (2)
  - Overdose [Fatal]
  - Insomnia [Unknown]

NARRATIVE: CASE EVENT DATE: 20230801
